FAERS Safety Report 14288045 (Version 1)
Quarter: 2017Q4

REPORT INFORMATION
  Report Type: Spontaneous
  Country: US (occurrence: US)
  Receive Date: 20171215
  Receipt Date: 20171215
  Transmission Date: 20180321
  Serious: Yes (Hospitalization)
  Sender: FDA-Public Use
  Company Number: US-BEH-2017085937

PATIENT
  Sex: Female
  Weight: 87.98 kg

DRUGS (32)
  1. PROVENTIL [Concomitant]
     Active Substance: ALBUTEROL
  2. VITAMIN A                          /00056001/ [Concomitant]
     Active Substance: RETINOL
  3. HYDRALAZINE [Concomitant]
     Active Substance: HYDRALAZINE HYDROCHLORIDE
  4. RITUXAN [Concomitant]
     Active Substance: RITUXIMAB
  5. OXYGEN. [Concomitant]
     Active Substance: OXYGEN
  6. POTASSIUM [Concomitant]
     Active Substance: POTASSIUM
  7. ISOSORBIDE. [Concomitant]
     Active Substance: ISOSORBIDE
  8. RYTHMOL [Concomitant]
     Active Substance: PROPAFENONE HYDROCHLORIDE
  9. BETA CAROTENE [Concomitant]
  10. NEUPOGEN [Concomitant]
     Active Substance: FILGRASTIM
  11. NORVASC [Concomitant]
     Active Substance: AMLODIPINE BESYLATE
  12. XOPENEX [Concomitant]
     Active Substance: LEVALBUTEROL HYDROCHLORIDE
  13. ARMOUR THYROID [Concomitant]
     Active Substance: THYROID, PORCINE
  14. ELIQUIS [Concomitant]
     Active Substance: APIXABAN
  15. TENORMIN [Concomitant]
     Active Substance: ATENOLOL
  16. ASMANEX [Concomitant]
     Active Substance: MOMETASONE FUROATE
  17. HIZENTRA [Suspect]
     Active Substance: HUMAN IMMUNOGLOBULIN G
     Indication: COMBINED IMMUNODEFICIENCY
     Dosage: 10 G, UNK
     Route: 058
     Dates: start: 20110323
  18. COENZYME Q10 [Concomitant]
     Active Substance: UBIDECARENONE
  19. SINGULAIR [Concomitant]
     Active Substance: MONTELUKAST SODIUM
  20. PROZAC [Concomitant]
     Active Substance: FLUOXETINE HYDROCHLORIDE
  21. ZINC. [Concomitant]
     Active Substance: ZINC
  22. METFORMIN [Concomitant]
     Active Substance: METFORMIN HYDROCHLORIDE
  23. OMEPRAZOLE. [Concomitant]
     Active Substance: OMEPRAZOLE
  24. OMEGA 3                            /01333901/ [Concomitant]
     Active Substance: FISH OIL\TOCOPHEROL
  25. PRADAXA [Concomitant]
     Active Substance: DABIGATRAN ETEXILATE MESYLATE
  26. BENICAR [Concomitant]
     Active Substance: OLMESARTAN MEDOXOMIL
  27. ALIGN [Concomitant]
     Active Substance: BIFIDOBACTERIUM LONGUM SUBSP. INFANTIS
  28. HIZENTRA [Suspect]
     Active Substance: HUMAN IMMUNOGLOBULIN G
     Dosage: UNK
     Route: 058
  29. JANUVIA [Concomitant]
     Active Substance: SITAGLIPTIN PHOSPHATE
  30. LEVOTHROID [Concomitant]
     Active Substance: LEVOTHYROXINE SODIUM
  31. MEDROL [Concomitant]
     Active Substance: METHYLPREDNISOLONE
  32. FUROSEMIDE. [Concomitant]
     Active Substance: FUROSEMIDE

REACTIONS (1)
  - Cardioversion [Unknown]
